FAERS Safety Report 6994457-X (Version None)
Quarter: 2010Q3

REPORT INFORMATION
  Report Type: 
  Country: None (occurrence: None)
  Receive Date: 20100917
  Receipt Date: 20100908
  Transmission Date: 20110219
  Serious: Yes (Hospitalization, Other)
  Sender: FDA-Public Use
  Company Number: US-JNJFOC-20100903223

PATIENT
  Age: 58 Year
  Sex: Female
  Weight: 113.4 kg

DRUGS (9)
  1. RISPERIDONE [Suspect]
     Indication: PARANOIA
     Route: 065
  2. RISPERIDONE [Suspect]
     Indication: ANXIETY
     Route: 065
  3. INVEGA [Suspect]
     Indication: PARANOIA
     Route: 048
  4. INVEGA [Suspect]
     Indication: ANXIETY
     Route: 048
  5. GEODON [Suspect]
     Indication: PARANOIA
     Route: 048
  6. GEODON [Suspect]
     Route: 048
  7. GEODON [Suspect]
     Indication: ANXIETY
     Route: 048
  8. GEODON [Suspect]
     Route: 048
  9. CELEXA [Concomitant]
     Indication: DEPRESSION
     Route: 065

REACTIONS (5)
  - ABDOMINAL DISCOMFORT [None]
  - ASTHENIA [None]
  - HYPERHIDROSIS [None]
  - TREMOR [None]
  - WEIGHT INCREASED [None]
